FAERS Safety Report 23786463 (Version 1)
Quarter: 2024Q2

REPORT INFORMATION
  Report Type: Spontaneous
  Country: CA (occurrence: CA)
  Receive Date: 20240426
  Receipt Date: 20240426
  Transmission Date: 20240716
  Serious: Yes (Other)
  Sender: FDA-Public Use
  Company Number: CA-ABBVIE-5734166

PATIENT
  Age: 49 Year
  Sex: Female

DRUGS (1)
  1. BOTOX [Suspect]
     Active Substance: ONABOTULINUMTOXINA
     Indication: Headache
     Dosage: TIME INTERVAL: AS NECESSARY: FREQUENCY TEXT OF BOTOX WAS ONCE
     Route: 030

REACTIONS (12)
  - Sensation of foreign body [Recovering/Resolving]
  - Asthenia [Recovering/Resolving]
  - Anxiety [Recovering/Resolving]
  - Fatigue [Recovering/Resolving]
  - Headache [Recovering/Resolving]
  - Dizziness [Recovering/Resolving]
  - Dry mouth [Recovering/Resolving]
  - Weight decreased [Recovering/Resolving]
  - Palpitations [Recovering/Resolving]
  - Dysphagia [Recovering/Resolving]
  - Eructation [Recovering/Resolving]
  - Abdominal pain upper [Recovering/Resolving]
